FAERS Safety Report 10380451 (Version 2)
Quarter: 2014Q3

REPORT INFORMATION
  Report Type: Spontaneous
  Country: JP (occurrence: JP)
  Receive Date: 20140813
  Receipt Date: 20140819
  Transmission Date: 20150326
  Serious: Yes (Hospitalization)
  Sender: FDA-Public Use
  Company Number: JP-JNJFOC-20140803857

PATIENT
  Age: 41 Year
  Sex: Female

DRUGS (5)
  1. RISPERDAL [Suspect]
     Active Substance: RISPERIDONE
     Indication: RESTLESSNESS
     Route: 048
  2. XEPLION [Suspect]
     Active Substance: PALIPERIDONE PALMITATE
     Indication: SCHIZOPHRENIA
     Route: 030
     Dates: start: 20140417, end: 20140711
  3. LENDORMIN [Concomitant]
     Active Substance: BROTIZOLAM
     Indication: INSOMNIA
     Route: 048
  4. WYPAX [Concomitant]
     Active Substance: LORAZEPAM
     Indication: ANXIETY
     Route: 048
  5. SILECE [Concomitant]
     Active Substance: FLUNITRAZEPAM
     Indication: INSOMNIA
     Route: 065

REACTIONS (2)
  - Psychiatric symptom [Unknown]
  - White blood cell count increased [Recovered/Resolved]

NARRATIVE: CASE EVENT DATE: 201407
